FAERS Safety Report 5926573-5 (Version None)
Quarter: 2008Q4

REPORT INFORMATION
  Report Type: 
  Country: None (occurrence: None)
  Receive Date: 20081022
  Receipt Date: 20081016
  Transmission Date: 20090506
  Serious: Yes (Other)
  Sender: FDA-Public Use
  Company Number: US-GENENTECH-270016

PATIENT
  Age: 54 Year
  Sex: Female

DRUGS (4)
  1. BLINDED BEVACIZUMAB [Suspect]
     Indication: OVARIAN EPITHELIAL CANCER
     Dosage: 15 MG/KG, UNK
     Route: 042
     Dates: start: 20071213
  2. BLINDED PLACEBO [Suspect]
     Indication: OVARIAN EPITHELIAL CANCER
     Dosage: 15 MG/KG, UNK
     Route: 042
     Dates: start: 20071213
  3. PACLITAXEL [Suspect]
     Indication: OVARIAN EPITHELIAL CANCER
     Dosage: 175 MG/M2, UNK
     Route: 042
     Dates: start: 20071213
  4. CARBOPLATIN [Suspect]
     Indication: OVARIAN EPITHELIAL CANCER
     Dosage: 6 AUC, UNK
     Route: 042
     Dates: start: 20071213

REACTIONS (1)
  - FAT NECROSIS [None]
